FAERS Safety Report 6958219-1 (Version None)
Quarter: 2010Q3

REPORT INFORMATION
  Report Type: 
  Country: None (occurrence: None)
  Receive Date: 20100831
  Receipt Date: 20100817
  Transmission Date: 20110219
  Serious: Yes (Other)
  Sender: FDA-Public Use
  Company Number: BR-JNJFOC-20100808991

PATIENT
  Sex: Female
  Weight: 90 kg

DRUGS (9)
  1. TRAMAL [Suspect]
     Indication: TONSILLECTOMY
     Route: 065
  2. TRAMAL [Suspect]
     Dosage: ONE EVERY 12 HOURS
     Route: 065
  3. TRAMAL [Suspect]
     Indication: ARTHRALGIA
     Route: 065
  4. TRAMAL [Suspect]
     Dosage: ONE EVERY 12 HOURS
     Route: 065
  5. TRAMAL RETARD [Suspect]
     Indication: PRODUCT USED FOR UNKNOWN INDICATION
     Route: 065
  6. TRAMAL RETARD [Suspect]
     Route: 065
  7. OMEPRAZOLE [Concomitant]
  8. ALL OTHER THERAPEUTIC PRODUCTS [Concomitant]
  9. LEVOTHYROXINE SODIUM [Concomitant]
     Indication: HYPOTHYROIDISM

REACTIONS (3)
  - DRUG INEFFECTIVE [None]
  - HYPOTHYROIDISM [None]
  - THERAPY REGIMEN CHANGED [None]
